FAERS Safety Report 5721550-1 (Version None)
Quarter: 2008Q2

REPORT INFORMATION
  Report Type: 
  Country: None (occurrence: None)
  Receive Date: 20080429
  Receipt Date: 20070308
  Transmission Date: 20081010
  Serious: No
  Sender: FDA-Public Use
  Company Number: US-ASTRAZENECA-2007UW04576

PATIENT
  Sex: Male

DRUGS (2)
  1. NEXIUM [Suspect]
     Dosage: LOST VOICE ON NEXIUM SWITCHED TO PREVACID, BUT SWITCHED BACK TO NEXIUM
     Route: 048
  2. PREVACID [Concomitant]

REACTIONS (1)
  - APHONIA [None]
